FAERS Safety Report 7916102 (Version 3)
Quarter: 2014Q1

REPORT INFORMATION
  Report Type: Spontaneous
  Country: US (occurrence: US)
  Receive Date: 20110427
  Receipt Date: 20140210
  Transmission Date: 20141002
  Serious: Yes (Hospitalization, Other)
  Sender: FDA-Public Use
  Company Number: US-BAYER-2010-003073

PATIENT
  Age: 27 Year
  Sex: Female
  Weight: 79 kg

DRUGS (3)
  1. YASMIN [Suspect]
     Dosage: UNK
     Route: 048
     Dates: start: 200311, end: 200908
  2. PRILOSEC [Concomitant]
  3. VICODIN [Concomitant]
     Indication: PAIN

REACTIONS (8)
  - Cholelithiasis [None]
  - Gallbladder disorder [None]
  - Cholecystitis chronic [None]
  - Anxiety [None]
  - Anhedonia [None]
  - Quality of life decreased [None]
  - Pain [None]
  - Fear [None]
